FAERS Safety Report 9849864 (Version 1)
Quarter: 2014Q1

REPORT INFORMATION
  Report Type: Report from Study
  Country: US (occurrence: US)
  Receive Date: 20140128
  Receipt Date: 20140128
  Transmission Date: 20141002
  Serious: Yes (Death)
  Sender: FDA-Public Use
  Company Number: PHEH2014US001954

PATIENT
  Sex: Female

DRUGS (13)
  1. AFINITOR [Suspect]
     Dosage: 10 MG, QD
     Route: 048
  2. SANDOSTATIN LAR [Concomitant]
     Dosage: 10 MG
  3. VITAMIIN C [Concomitant]
     Dosage: 500 MG
  4. CALCIUM +D                         /07511201/ [Concomitant]
  5. VITAMIN B12 [Concomitant]
     Dosage: 1000 UG
     Route: 065
  6. ADVIL//IBUPROFEN [Concomitant]
     Dosage: 200 MG
  7. XANAX [Concomitant]
     Dosage: 0.25 MG
  8. ZOFRAN [Concomitant]
     Dosage: 8 MG
  9. CARDIZEM LA [Concomitant]
     Dosage: 120 MG
  10. XGEVA [Concomitant]
     Route: 065
  11. STADOL [Concomitant]
     Dosage: 2 MG/ML
  12. PHENERGAN                          /00404701/ [Concomitant]
     Dosage: 25 MG
  13. PROBIOTIC                          /07343501/ [Concomitant]

REACTIONS (1)
  - Death [Fatal]
